FAERS Safety Report 9103642 (Version 1)
Quarter: 2013Q1

REPORT INFORMATION
  Report Type: Report from Study
  Country: JP (occurrence: JP)
  Receive Date: 20130219
  Receipt Date: 20130219
  Transmission Date: 20140127
  Serious: Yes (Other)
  Sender: FDA-Public Use
  Company Number: JP-009507513-1302JPN004949

PATIENT
  Age: 75 Year
  Sex: Female

DRUGS (6)
  1. TAPROS [Suspect]
     Indication: OCULAR HYPERTENSION
     Dosage: 2 GTT, QD
     Route: 047
     Dates: start: 20090317
  2. CYANOCOBALAMIN [Concomitant]
     Dosage: UNK
     Dates: start: 20080916, end: 20090630
  3. PIRENOXINE [Concomitant]
     Dosage: UNK
     Dates: start: 20080916, end: 20081201
  4. LEVOFLOXACIN [Concomitant]
     Dosage: UNK
     Dates: start: 20081201
  5. MECOBALAMIN [Concomitant]
     Dosage: UNK
     Dates: start: 20090302, end: 20100222
  6. HORMONES (UNSPECIFIED) [Concomitant]
     Dosage: UNK
     Dates: start: 20090302, end: 20090714

REACTIONS (1)
  - Cataract [Recovered/Resolved]
